FAERS Safety Report 7536781-8 (Version None)
Quarter: 2011Q2

REPORT INFORMATION
  Report Type: 
  Country: None (occurrence: None)
  Receive Date: 20110603
  Receipt Date: 20110519
  Transmission Date: 20111010
  Serious: Yes (Hospitalization, Other)
  Sender: FDA-Public Use
  Company Number: 2011MA005751

PATIENT
  Age: 51 Year
  Sex: Female

DRUGS (1)
  1. IBUPROFEN [Suspect]
     Indication: ARTHRALGIA
     Dates: start: 19940401, end: 20061001

REACTIONS (3)
  - MENINGITIS ASEPTIC [None]
  - MUSCLE SPASMS [None]
  - VISUAL IMPAIRMENT [None]
